FAERS Safety Report 7335734-2 (Version None)
Quarter: 2011Q1

REPORT INFORMATION
  Report Type: 
  Country: None (occurrence: None)
  Receive Date: 20110307
  Receipt Date: 20110228
  Transmission Date: 20110831
  Serious: Yes (Other)
  Sender: FDA-Public Use
  Company Number: B0703599A

PATIENT
  Age: 60 Year
  Sex: Male

DRUGS (4)
  1. KORNAM [Suspect]
     Dates: start: 20091128
  2. SYLIMAROL [Concomitant]
  3. LEXILIUM [Concomitant]
  4. AVODART [Suspect]
     Dosage: .5MG PER DAY
     Route: 065
     Dates: start: 20091128, end: 20110208

REACTIONS (1)
  - TRANSAMINASES INCREASED [None]
